FAERS Safety Report 5261511-2 (Version None)
Quarter: 2007Q1

REPORT INFORMATION
  Report Type: 
  Country: None (occurrence: None)
  Receive Date: 20070307
  Receipt Date: 20070222
  Transmission Date: 20070707
  Serious: Yes (Life-Threatening)
  Sender: FDA-Public Use
  Company Number: T200601142

PATIENT
  Age: 64 Year
  Sex: Male

DRUGS (1)
  1. OPTIRAY 320 [Suspect]
     Indication: COMPUTERISED TOMOGRAM
     Dosage: 100 ML, SINGLE, INTRAVENOUS
     Route: 042
     Dates: start: 20061011, end: 20061011

REACTIONS (2)
  - ANAPHYLACTIC SHOCK [None]
  - VENTRICULAR FIBRILLATION [None]
